FAERS Safety Report 6868067-9 (Version None)
Quarter: 2010Q3

REPORT INFORMATION
  Report Type: 
  Country: None (occurrence: None)
  Receive Date: 20100722
  Receipt Date: 20080515
  Transmission Date: 20110219
  Serious: No
  Sender: FDA-Public Use
  Company Number: US-PFIZER INC-2008041939

PATIENT
  Sex: Female
  Weight: 55.5 kg

DRUGS (3)
  1. CHANTIX [Suspect]
     Indication: SMOKING CESSATION THERAPY
     Dates: start: 20080505
  2. PRINIVIL [Concomitant]
  3. DYAZIDE [Concomitant]

REACTIONS (5)
  - ABDOMINAL DISCOMFORT [None]
  - DECREASED INTEREST [None]
  - DYSPEPSIA [None]
  - INSOMNIA [None]
  - NAUSEA [None]
